FAERS Safety Report 8120461-4 (Version None)
Quarter: 2012Q1

REPORT INFORMATION
  Report Type: 
  Country: None (occurrence: None)
  Receive Date: 20120207
  Receipt Date: 20120203
  Transmission Date: 20120608
  Serious: Yes (Life-Threatening, Hospitalization, Disabling, Other)
  Sender: FDA-Public Use
  Company Number: PHHY2011US64428

PATIENT
  Sex: Male
  Weight: 90.7 kg

DRUGS (8)
  1. COUMADIN [Concomitant]
     Dosage: 5 MG, QHS
     Route: 048
  2. REBIF [Concomitant]
     Dosage: 22 UG, UNK
  3. REBIF [Concomitant]
     Dosage: 44 UG, UNK
  4. METOPROLOL TARTRATE [Concomitant]
     Indication: HYPERTENSION
     Dosage: 12.5 MG, BID
     Route: 048
  5. FAMPRIDINE [Concomitant]
  6. GILENYA [Suspect]
     Indication: MULTIPLE SCLEROSIS
     Dosage: 0.5 MG, DAILY
     Route: 048
     Dates: start: 20110627, end: 20110701
  7. LISINOPRIL [Concomitant]
     Dosage: 2.5 MG, DAILY
     Route: 048
  8. FAMOTIDINE [Concomitant]
     Indication: DYSPEPSIA
     Dosage: 20 MG, BID
     Route: 048

REACTIONS (14)
  - TRICUSPID VALVE INCOMPETENCE [None]
  - HEART RATE INCREASED [None]
  - ARTERIAL STENOSIS [None]
  - ACUTE MYOCARDIAL INFARCTION [None]
  - CHEST DISCOMFORT [None]
  - ALANINE AMINOTRANSFERASE INCREASED [None]
  - EJECTION FRACTION DECREASED [None]
  - BLOOD CREATINE PHOSPHOKINASE MB INCREASED [None]
  - HYPERLIPIDAEMIA [None]
  - CHEST PAIN [None]
  - TROPONIN INCREASED [None]
  - ECHOCARDIOGRAM ABNORMAL [None]
  - VENTRICULAR DYSFUNCTION [None]
  - ASPARTATE AMINOTRANSFERASE INCREASED [None]
